FAERS Safety Report 16429288 (Version 1)
Quarter: 2019Q2

REPORT INFORMATION
  Report Type: Spontaneous
  Country: ES (occurrence: ES)
  Receive Date: 20190614
  Receipt Date: 20190614
  Transmission Date: 20190711
  Serious: Yes (Other)
  Sender: FDA-Public Use
  Company Number: ES-AUROBINDO-AUR-APL-2019-033294

PATIENT

DRUGS (7)
  1. INDAPAMIDE. [Interacting]
     Active Substance: INDAPAMIDE
     Indication: HYPERTENSION
     Dosage: 2.5 MILLIGRAM, DAILY,1-0-0
     Route: 048
     Dates: start: 200609
  2. AMARYL [Interacting]
     Active Substance: GLIMEPIRIDE
     Indication: DIABETES MELLITUS
     Dosage: 2 MILLIGRAM, DAILY,0-1-0
     Route: 048
     Dates: start: 20051130
  3. TRULICITY [Interacting]
     Active Substance: DULAGLUTIDE
     Indication: DIABETES MELLITUS INADEQUATE CONTROL
     Dosage: 1.5 MILLIGRAM, EVERY WEEK, 1.5MG WEEKLY SUBCUTANEOUS
     Route: 058
     Dates: start: 20181130, end: 20190218
  4. METFORMIN [Suspect]
     Active Substance: METFORMIN HYDROCHLORIDE
     Indication: DIABETES MELLITUS
     Dosage: 850 MILLIGRAM, TWO TIMES A DAY,1-0-1
     Route: 048
     Dates: start: 20180404
  5. TRAJENTA [Interacting]
     Active Substance: LINAGLIPTIN
     Indication: DIABETES MELLITUS
     Dosage: 5 MILLIGRAM, DAILY,1-0-0
     Route: 048
     Dates: start: 20180316
  6. TRULICITY [Interacting]
     Active Substance: DULAGLUTIDE
     Indication: OBESITY
  7. ENALAPRIL 5 MG TABLETS [Interacting]
     Active Substance: ENALAPRIL
     Indication: HYPERTENSION
     Dosage: 5 MILLIGRAM, DAILY,ENALAPRIL 5MG, A COMP WITH BREAKFAST
     Route: 048
     Dates: start: 20181130

REACTIONS (5)
  - Diarrhoea [Recovered/Resolved]
  - Pancreatitis [Recovered/Resolved]
  - Vomiting [Recovered/Resolved]
  - Abdominal pain [Recovered/Resolved]
  - Nausea [Recovered/Resolved]

NARRATIVE: CASE EVENT DATE: 201902
